FAERS Safety Report 13068538 (Version 1)
Quarter: 2016Q4

REPORT INFORMATION
  Report Type: Spontaneous
  Country: DE (occurrence: DE)
  Receive Date: 20161228
  Receipt Date: 20161228
  Transmission Date: 20170207
  Serious: Yes (Hospitalization, Other)
  Sender: FDA-Public Use
  Company Number: DE-PFIZER INC-2016595911

PATIENT
  Age: 35 Year
  Sex: Female

DRUGS (1)
  1. LYRICA [Suspect]
     Active Substance: PREGABALIN
     Indication: DEPENDENCE
     Dosage: 150 MG, UNK
     Route: 048
     Dates: start: 20161211

REACTIONS (2)
  - Drug abuse [Unknown]
  - Poisoning [Recovered/Resolved]

NARRATIVE: CASE EVENT DATE: 20161211
